FAERS Safety Report 10273587 (Version 1)
Quarter: 2014Q2

REPORT INFORMATION
  Report Type: Spontaneous
  Country: US (occurrence: None)
  Receive Date: 20140630
  Receipt Date: 20140630
  Transmission Date: 20141212
  Serious: Yes (Hospitalization)
  Sender: FDA-Public Use
  Company Number: US-H14001-14-00118

PATIENT
  Sex: 0

DRUGS (2)
  1. DIGOXIN [Suspect]
     Indication: ATRIAL FIBRILLATION
  2. DIGOXIN [Suspect]
     Indication: CARDIAC FAILURE

REACTIONS (3)
  - Toxicity to various agents [None]
  - Cardioactive drug level increased [None]
  - Electrocardiogram change [None]
